FAERS Safety Report 14955859 (Version 2)
Quarter: 2018Q2

REPORT INFORMATION
  Report Type: Report from Study
  Country: CO (occurrence: CO)
  Receive Date: 20180531
  Receipt Date: 20180629
  Transmission Date: 20180711
  Serious: Yes (Death, Life-Threatening, Hospitalization, Other)
  Sender: FDA-Public Use
  Company Number: CO-AMGEN-COLSL2018056358

PATIENT
  Age: 78 Year
  Sex: Female

DRUGS (1)
  1. XGEVA [Suspect]
     Active Substance: DENOSUMAB
     Indication: PROPHYLAXIS
     Dosage: 120 MG, QMO
     Route: 058
     Dates: start: 20160525, end: 20180326

REACTIONS (6)
  - Diarrhoea [Recovered/Resolved]
  - Infarction [Fatal]
  - Dehydration [Recovered/Resolved]
  - Discomfort [Not Recovered/Not Resolved]
  - Respiratory failure [Fatal]
  - Vomiting [Recovered/Resolved]

NARRATIVE: CASE EVENT DATE: 2018
